FAERS Safety Report 23084780 (Version 5)
Quarter: 2024Q2

REPORT INFORMATION
  Report Type: Spontaneous
  Country: TW (occurrence: TW)
  Receive Date: 20231019
  Receipt Date: 20240402
  Transmission Date: 20240716
  Serious: Yes (Death, Hospitalization, Other)
  Sender: FDA-Public Use
  Company Number: TW-PFIZER INC-PV202300171806

PATIENT
  Age: 88 Year
  Sex: Female

DRUGS (12)
  1. XELJANZ [Suspect]
     Active Substance: TOFACITINIB CITRATE
     Indication: Rheumatoid arthritis
     Dosage: 5 MG, 2X/DAY (BID)
     Route: 048
     Dates: start: 20161206, end: 20231013
  2. HEPARIN SODIUM [Suspect]
     Active Substance: HEPARIN SODIUM
     Indication: Pulmonary embolism
     Dosage: UNK, 25000 U HEPARIN IN 500CC HALF SALINE, 14 GTT/MIN
     Dates: start: 20231011, end: 20231013
  3. PLAQUENIL [Concomitant]
     Active Substance: HYDROXYCHLOROQUINE SULFATE
     Dosage: 200 MG, Q2D
     Route: 048
     Dates: end: 20231013
  4. CELEBREX [Concomitant]
     Active Substance: CELECOXIB
     Dosage: 200 MG, QD
     Route: 048
     Dates: end: 20231013
  5. COBAMAMIDE [Concomitant]
     Active Substance: COBAMAMIDE
     Dosage: 0.5 MG, 2X/DAY
     Route: 048
     Dates: end: 20231013
  6. PLAVIX [Concomitant]
     Active Substance: CLOPIDOGREL BISULFATE
     Dosage: 75 MG, ALTERNATE DAY (Q2D)
     Route: 048
     Dates: end: 20231013
  7. ISOSORBIDE MONONITRATE [Concomitant]
     Active Substance: ISOSORBIDE MONONITRATE
     Dosage: 20 MG, 2X/DAY (BID)
     Route: 048
     Dates: end: 20231013
  8. FOLIC ACID [Concomitant]
     Active Substance: FOLIC ACID
     Dosage: 5 MG, 1X/DAY (QD)
     Route: 048
     Dates: end: 20231013
  9. BARACLUDE [Concomitant]
     Active Substance: ENTECAVIR
     Dosage: 0.5 MG, WEEKLY (QW)
     Route: 048
     Dates: end: 20231013
  10. DEXILANT [Concomitant]
     Active Substance: DEXLANSOPRAZOLE
     Indication: Gastrooesophageal reflux disease
     Dosage: 60 MG, 1X/DAY (QD)
     Route: 048
     Dates: end: 20231013
  11. DEXILANT [Concomitant]
     Active Substance: DEXLANSOPRAZOLE
     Indication: Duodenal ulcer
  12. DEXILANT [Concomitant]
     Active Substance: DEXLANSOPRAZOLE
     Indication: Gastric ulcer

REACTIONS (3)
  - Hypovolaemic shock [Fatal]
  - Gastrointestinal haemorrhage [Fatal]
  - Pulmonary embolism [Unknown]

NARRATIVE: CASE EVENT DATE: 20231011
